FAERS Safety Report 12916270 (Version 1)
Quarter: 2016Q4

REPORT INFORMATION
  Report Type: Spontaneous
  Country: US (occurrence: US)
  Receive Date: 20161107
  Receipt Date: 20161107
  Transmission Date: 20170207
  Serious: Yes (Death, Hospitalization, Other)
  Sender: FDA-Public Use
  Company Number: None

PATIENT
  Age: 75 Year
  Sex: Female
  Weight: 100.33 kg

DRUGS (19)
  1. METHOTREXATE SODIUM 2.5MG TABLETS [Suspect]
     Active Substance: METHOTREXATE SODIUM
     Indication: RHEUMATOID ARTHRITIS
     Dosage: ?          QUANTITY:TAKE 6 TABLETS;ONCE A.M. ORAL ?
     Route: 048
     Dates: start: 20130619, end: 20160701
  2. FLUDROCORTISONE [Concomitant]
     Active Substance: FLUDROCORTISONE
  3. NOVOLIN 70/30 [Concomitant]
     Active Substance: INSULIN HUMAN
  4. C-PAP [Concomitant]
  5. CRANBERRY EXTRACT [Concomitant]
     Active Substance: CRANBERRY JUICE
  6. FISH OIL [Concomitant]
     Active Substance: FISH OIL
  7. PREDNISONE. [Concomitant]
     Active Substance: PREDNISONE
  8. COENZYME Q10 [Concomitant]
     Active Substance: UBIDECARENONE
  9. NOVOLIN R [Concomitant]
     Active Substance: INSULIN HUMAN
  10. TYLENOL [Concomitant]
     Active Substance: ACETAMINOPHEN
  11. ALPHA LIPOIC ACID [Concomitant]
     Active Substance: .ALPHA.-LIPOIC ACID
  12. CILOSTAZOL. [Concomitant]
     Active Substance: CILOSTAZOL
  13. FOLIC ACID. [Concomitant]
     Active Substance: FOLIC ACID
  14. JANUVIA [Concomitant]
     Active Substance: SITAGLIPTIN PHOSPHATE
  15. LUMIGAN [Concomitant]
     Active Substance: BIMATOPROST
  16. ASPIRIN. [Concomitant]
     Active Substance: ASPIRIN
  17. AMLODIPINE [Concomitant]
     Active Substance: AMLODIPINE BESYLATE
  18. METHOTREXATE SODIUM. [Concomitant]
     Active Substance: METHOTREXATE SODIUM
  19. SIMBRINZA [Concomitant]
     Active Substance: BRIMONIDINE TARTRATE\BRINZOLAMIDE

REACTIONS (5)
  - Pancytopenia [None]
  - Full blood count decreased [None]
  - Dyspnoea [None]
  - Stomatitis [None]
  - Oral infection [None]

NARRATIVE: CASE EVENT DATE: 20160520
